FAERS Safety Report 25599146 (Version 2)
Quarter: 2025Q3

REPORT INFORMATION
  Report Type: Spontaneous
  Country: US (occurrence: US)
  Receive Date: 20250724
  Receipt Date: 20250808
  Transmission Date: 20251020
  Serious: Yes (Other)
  Sender: TEVA
  Company Number: US-TEVA-VS-3352312

PATIENT
  Age: 86 Year
  Sex: Male

DRUGS (8)
  1. TRIAMCINOLONE [Suspect]
     Active Substance: TRIAMCINOLONE
     Indication: Drug eruption
     Route: 061
     Dates: start: 2024
  2. CICLOPIROX [Concomitant]
     Active Substance: CICLOPIROX
     Indication: Intertrigo
     Route: 061
     Dates: start: 2024
  3. FLUCONAZOLE [Concomitant]
     Active Substance: FLUCONAZOLE
     Indication: Intertrigo
     Route: 048
     Dates: start: 2024
  4. CLOBETASOL [Concomitant]
     Active Substance: CLOBETASOL
     Indication: Guttate psoriasis
     Route: 061
     Dates: start: 2023
  5. DUPILUMAB [Suspect]
     Active Substance: DUPILUMAB
     Indication: Drug eruption
     Route: 058
     Dates: start: 2024
  6. DUPILUMAB [Suspect]
     Active Substance: DUPILUMAB
     Indication: Drug eruption
     Route: 058
     Dates: start: 2024
  7. PEMBROLIZUMAB [Suspect]
     Active Substance: PEMBROLIZUMAB
     Indication: Prostate cancer metastatic
     Route: 065
     Dates: start: 202306, end: 202310
  8. CALCIPOTRIENE [Concomitant]
     Active Substance: CALCIPOTRIENE
     Indication: Intertrigo
     Route: 065
     Dates: start: 2024

REACTIONS (4)
  - Drug eruption [Recovering/Resolving]
  - Off label use [Unknown]
  - Drug ineffective [Unknown]
  - Keratoacanthoma [Recovered/Resolved]

NARRATIVE: CASE EVENT DATE: 20231101
